FAERS Safety Report 9053759 (Version 1)
Quarter: 2013Q1

REPORT INFORMATION
  Report Type: Spontaneous
  Country: US (occurrence: None)
  Receive Date: 20130117
  Receipt Date: 20130313
  Transmission Date: 20140127
  Serious: Yes (Hospitalization)
  Sender: FDA-Public Use
  Company Number: JPI-P-028991

PATIENT
  Age: 38 Year
  Sex: Female

DRUGS (2)
  1. XYREM (500 MILLIGRAM/ MILLILITERS, SOLUTION) (SODIUM OXYBATE) [Suspect]
     Indication: INSOMNIA
     Route: 048
     Dates: start: 20100422
  2. UNSPECIFIED PAIN MEDICATIONS STOPPED [Concomitant]

REACTIONS (7)
  - Dehydration [None]
  - Blood pressure increased [None]
  - Vomiting [None]
  - Intentional drug misuse [None]
  - Fatigue [None]
  - Pain [None]
  - Treatment noncompliance [None]
